FAERS Safety Report 7733166-6 (Version None)
Quarter: 2011Q3

REPORT INFORMATION
  Report Type: 
  Country: None (occurrence: None)
  Receive Date: 20110902
  Receipt Date: 20110902
  Transmission Date: 20111222
  Serious: Yes (Other)
  Sender: FDA-Public Use
  Company Number: None

PATIENT
  Age: 36 Year
  Sex: Female
  Weight: 124.7392 kg

DRUGS (2)
  1. SEROQUEL [Suspect]
     Indication: SCHIZOPHRENIA
     Dosage: 200 MG BEDTIME
  2. SEROQUEL [Suspect]
     Indication: BIPOLAR DISORDER
     Dosage: 200 MG BEDTIME

REACTIONS (14)
  - RENAL IMPAIRMENT [None]
  - MOVEMENT DISORDER [None]
  - ANGINA PECTORIS [None]
  - BALANCE DISORDER [None]
  - BONE DISORDER [None]
  - WEIGHT INCREASED [None]
  - INSOMNIA [None]
  - JOINT LOCK [None]
  - EYE SWELLING [None]
  - HYPERTENSION [None]
  - OEDEMA PERIPHERAL [None]
  - OOPHORECTOMY BILATERAL [None]
  - CHOLECYSTECTOMY [None]
  - HYPOAESTHESIA [None]
